FAERS Safety Report 13278490 (Version 1)
Quarter: 2017Q1

REPORT INFORMATION
  Report Type: Spontaneous
  Country: DE (occurrence: DE)
  Receive Date: 20170228
  Receipt Date: 20170228
  Transmission Date: 20170428
  Serious: Yes (Congenital Anomaly, Other)
  Sender: FDA-Public Use
  Company Number: DE-MYLANLABS-2017M1012360

PATIENT

DRUGS (3)
  1. FONDAPARINUX [Suspect]
     Active Substance: FONDAPARINUX
     Indication: HYPERCOAGULATION
     Dosage: GESTATION PERIOD AT TIME OF EXPOSURE: 1 TRIMESTER
     Route: 064
  2. PARACETAMOL [Concomitant]
     Active Substance: ACETAMINOPHEN
     Indication: HEADACHE
     Dosage: EXPOSURE: 25. - 28. GESTATIONAL WEEK
     Route: 064
  3. FOLIC ACID. [Concomitant]
     Active Substance: FOLIC ACID
     Indication: PROPHYLAXIS OF NEURAL TUBE DEFECT
     Dosage: GESTATION PERIOD AT TIME OF EXPOSURE: 2 TRIMESTER
     Route: 064

REACTIONS (9)
  - Hypoplastic right heart syndrome [Not Recovered/Not Resolved]
  - Dysmorphism [Not Recovered/Not Resolved]
  - Foetal exposure during pregnancy [Unknown]
  - Ventricular septal defect [Not Recovered/Not Resolved]
  - Congenital tricuspid valve atresia [Unknown]
  - Pulmonary valve stenosis congenital [Not Recovered/Not Resolved]
  - Ductus venosus agenesis [Not Recovered/Not Resolved]
  - Atrial septal defect [Not Recovered/Not Resolved]
  - Foot deformity [Unknown]

NARRATIVE: CASE EVENT DATE: 20160720
